FAERS Safety Report 9331353 (Version 1)
Quarter: 2013Q2

REPORT INFORMATION
  Report Type: Spontaneous
  Country: US (occurrence: US)
  Receive Date: 20130605
  Receipt Date: 20130605
  Transmission Date: 20140414
  Serious: No
  Sender: FDA-Public Use
  Company Number: US-TARO-2013P1003301

PATIENT
  Age: 6 Year
  Sex: Female
  Weight: 18.6 kg

DRUGS (5)
  1. CETIRIZINE HCL ORAL SOLUTION ALLERGY 1 MG/ML OTC [Suspect]
     Route: 048
     Dates: start: 2011
  2. CETIRIZINE HCL ORAL SOLUTION ALLERGY 1 MG/ML OTC [Suspect]
     Route: 048
  3. SINGULAIR [Concomitant]
  4. MULTIVITAMIN [Concomitant]
  5. PREVACID SOLUTAB [Concomitant]

REACTIONS (1)
  - Coeliac disease [Not Recovered/Not Resolved]
